FAERS Safety Report 7136248-5 (Version None)
Quarter: 2010Q4

REPORT INFORMATION
  Report Type: 
  Country: None (occurrence: None)
  Receive Date: 20101206
  Receipt Date: 20101129
  Transmission Date: 20110411
  Serious: No
  Sender: FDA-Public Use
  Company Number: US-BIOGENIDEC-2010BI013462

PATIENT
  Age: 42 Year
  Sex: Female

DRUGS (2)
  1. TYSABRI [Suspect]
     Indication: MULTIPLE SCLEROSIS
     Route: 042
     Dates: start: 20100415
  2. BENADRYL [Concomitant]
     Indication: PREMEDICATION

REACTIONS (4)
  - FATIGUE [None]
  - INCREASED TENDENCY TO BRUISE [None]
  - MIGRAINE [None]
  - SOMNOLENCE [None]
